FAERS Safety Report 7966541-5 (Version None)
Quarter: 2011Q4

REPORT INFORMATION
  Report Type: 
  Country: None (occurrence: None)
  Receive Date: 20111208
  Receipt Date: 20111129
  Transmission Date: 20120403
  Serious: Yes (Hospitalization)
  Sender: FDA-Public Use
  Company Number: DE-ASTRAZENECA-2011SE72327

PATIENT
  Age: 81 Year
  Sex: Male
  Weight: 85 kg

DRUGS (5)
  1. ASPIRIN [Concomitant]
  2. SIMVASTATIN [Concomitant]
  3. METOPROLOL TARTRATE [Concomitant]
  4. BRILIQUE [Suspect]
     Indication: ACUTE CORONARY SYNDROME
     Route: 048
     Dates: start: 20110414, end: 20110415
  5. FONDAPARINUX SODIUM [Concomitant]

REACTIONS (2)
  - PSYCHOMOTOR HYPERACTIVITY [None]
  - CONFUSIONAL STATE [None]
